FAERS Safety Report 25260713 (Version 3)
Quarter: 2025Q2

REPORT INFORMATION
  Report Type: Spontaneous
  Country: JP (occurrence: JP)
  Receive Date: 20250501
  Receipt Date: 20250602
  Transmission Date: 20250716
  Serious: No
  Sender: NOVO NORDISK
  Company Number: JP-NOVOPROD-1407052

PATIENT
  Age: 8 Decade
  Sex: Male

DRUGS (1)
  1. RYBELSUS [Suspect]
     Active Substance: SEMAGLUTIDE
     Indication: Diabetes mellitus
     Route: 048

REACTIONS (1)
  - Foreign body in throat [Unknown]
